FAERS Safety Report 7343331-8 (Version None)
Quarter: 2011Q1

REPORT INFORMATION
  Report Type: 
  Country: None (occurrence: None)
  Receive Date: 20110308
  Receipt Date: 20110308
  Transmission Date: 20110831
  Serious: No
  Sender: FDA-Public Use
  Company Number: None

PATIENT
  Sex: Female
  Weight: 55 kg

DRUGS (1)
  1. SODIUM CHLORIDE [Suspect]
     Indication: CROHN'S DISEASE
     Dosage: 1000ML DAILY IV DRIP
     Route: 041
     Dates: start: 20110223, end: 20110225

REACTIONS (3)
  - INFUSION RELATED REACTION [None]
  - CHILLS [None]
  - VOMITING [None]
